FAERS Safety Report 4795212-1 (Version None)
Quarter: 2005Q4

REPORT INFORMATION
  Report Type: 
  Country: None (occurrence: None)
  Receive Date: 20051006
  Receipt Date: 20050921
  Transmission Date: 20060501
  Serious: Yes (Other)
  Sender: FDA-Public Use
  Company Number: 12443

PATIENT
  Age: 30 Year
  Sex: Female

DRUGS (6)
  1. METHYLENE BLUE [Suspect]
     Indication: DIAGNOSTIC PROCEDURE
     Dosage: IU
     Route: 015
  2. PRE-MEDICXATION [Concomitant]
  3. MIDAZOLAM [Concomitant]
     Indication: ANAESTHESIA
  4. SUFENTANIL CITRATE [Concomitant]
     Indication: ANAESTHESIA
  5. PROPOFOL [Concomitant]
     Indication: ANAESTHESIA
  6. ATRACURIUM BESYLATE [Concomitant]
     Indication: ANAESTHESIA

REACTIONS (2)
  - ANAPHYLACTIC SHOCK [None]
  - URTICARIA [None]
